FAERS Safety Report 7658788-2 (Version None)
Quarter: 2011Q3

REPORT INFORMATION
  Report Type: 
  Country: None (occurrence: None)
  Receive Date: 20110805
  Receipt Date: 20110805
  Transmission Date: 20111222
  Serious: Yes (Death, Hospitalization)
  Sender: FDA-Public Use
  Company Number: None

PATIENT
  Age: 79 Year
  Sex: Female
  Weight: 75 kg

DRUGS (1)
  1. PRADAXA [Suspect]
     Indication: ATRIAL FIBRILLATION
     Dosage: 75 MG
     Route: 048
     Dates: start: 20110614, end: 20110623

REACTIONS (6)
  - PULSELESS ELECTRICAL ACTIVITY [None]
  - ACUTE RESPIRATORY FAILURE [None]
  - PULMONARY OEDEMA [None]
  - DIALYSIS [None]
  - CATHETER SITE HAEMORRHAGE [None]
  - HAEMORRHAGE [None]
